FAERS Safety Report 6418201-X (Version None)
Quarter: 2009Q4

REPORT INFORMATION
  Report Type: 
  Country: None (occurrence: None)
  Receive Date: 20091028
  Receipt Date: 20091018
  Transmission Date: 20100525
  Serious: Yes (Other)
  Sender: FDA-Public Use
  Company Number: AU-PFIZER INC-2009264127

PATIENT
  Age: 46 Year

DRUGS (2)
  1. CHAMPIX [Suspect]
  2. LEXAPRO [Concomitant]

REACTIONS (5)
  - ABNORMAL BEHAVIOUR [None]
  - ANXIETY [None]
  - HYPERHIDROSIS [None]
  - NIGHTMARE [None]
  - SOMATIC HALLUCINATION [None]
